FAERS Safety Report 7003179-0 (Version None)
Quarter: 2010Q3

REPORT INFORMATION
  Report Type: 
  Country: None (occurrence: None)
  Receive Date: 20100920
  Receipt Date: 20090724
  Transmission Date: 20110219
  Serious: No
  Sender: FDA-Public Use
  Company Number: US-ASTRAZENECA-2009SE06565

PATIENT
  Sex: Male

DRUGS (4)
  1. SEROQUEL [Suspect]
     Route: 048
     Dates: start: 20090716
  2. VALIUM [Concomitant]
  3. THYROID TAB [Concomitant]
  4. ERYTHROMYCIN [Concomitant]

REACTIONS (4)
  - DYSPHAGIA [None]
  - HALLUCINATION, AUDITORY [None]
  - MUSCLE CONTRACTIONS INVOLUNTARY [None]
  - URINE OUTPUT INCREASED [None]
